FAERS Safety Report 11472433 (Version 3)
Quarter: 2015Q3

REPORT INFORMATION
  Report Type: Spontaneous
  Country: US (occurrence: US)
  Receive Date: 20150908
  Receipt Date: 20150924
  Transmission Date: 20151125
  Serious: No
  Sender: FDA-Public Use
  Company Number: US-BAYER-2015-416519

PATIENT
  Sex: Male

DRUGS (2)
  1. AVELOX [Suspect]
     Active Substance: MOXIFLOXACIN HYDROCHLORIDE
     Indication: PROSTATITIS
     Dosage: 400 MG, UNK
     Dates: start: 20101119
  2. LEVAQUIN [Suspect]
     Active Substance: LEVOFLOXACIN
     Indication: PROSTATITIS
     Dosage: 500 MG, UNK

REACTIONS (6)
  - Neuropathy peripheral [None]
  - Discomfort [None]
  - Pain [None]
  - Injury [None]
  - Hypoaesthesia [None]
  - Emotional distress [None]
